FAERS Safety Report 11761544 (Version 1)
Quarter: 2015Q4

REPORT INFORMATION
  Report Type: Spontaneous
  Country: US (occurrence: US)
  Receive Date: 20151120
  Receipt Date: 20151120
  Transmission Date: 20160304
  Serious: No
  Sender: FDA-Public Use
  Company Number: US-ELI_LILLY_AND_COMPANY-US201212006185

PATIENT
  Sex: Female

DRUGS (1)
  1. FORTEO [Suspect]
     Active Substance: TERIPARATIDE
     Indication: OSTEOPOROSIS
     Dosage: 1 DF, QD
     Dates: start: 20121204, end: 20121226

REACTIONS (6)
  - Malaise [Unknown]
  - Intentional product misuse [Unknown]
  - Decreased appetite [Unknown]
  - Gait disturbance [Unknown]
  - Muscle spasms [Unknown]
  - Headache [Unknown]
